FAERS Safety Report 7817814-8 (Version None)
Quarter: 2011Q4

REPORT INFORMATION
  Report Type: 
  Country: None (occurrence: None)
  Receive Date: 20111017
  Receipt Date: 20111010
  Transmission Date: 20120403
  Serious: Yes (Other)
  Sender: FDA-Public Use
  Company Number: US-AMGEN-USASP2011025863

PATIENT
  Age: 30 Year
  Sex: Female

DRUGS (1)
  1. ENBREL [Suspect]
     Indication: PSORIATIC ARTHROPATHY
     Dosage: 50 MG, QWK
     Route: 058
     Dates: start: 20060901

REACTIONS (7)
  - INFERTILITY [None]
  - BLINDNESS [None]
  - STAPHYLOCOCCAL ABSCESS [None]
  - PSORIATIC ARTHROPATHY [None]
  - UPPER RESPIRATORY TRACT INFECTION [None]
  - CATARACT [None]
  - UVEITIS [None]
